FAERS Safety Report 26050454 (Version 1)
Quarter: 2025Q4

REPORT INFORMATION
  Report Type: Spontaneous
  Country: EU (occurrence: EU)
  Receive Date: 20251116
  Receipt Date: 20251116
  Transmission Date: 20260117
  Serious: Yes (Other)
  Sender: MERCK SHARP & DOHME LLC
  Company Number: EU-009507513-2349121

PATIENT
  Age: 49 Year
  Sex: Female

DRUGS (3)
  1. PEMBROLIZUMAB [Suspect]
     Active Substance: PEMBROLIZUMAB
     Indication: Cervix cancer metastatic
     Dosage: INTRODUCED ON THE 8TH CYCLE OF CHEMOTHERAPY
     Route: 042
     Dates: start: 2025, end: 2025
  2. PC [Concomitant]
     Indication: Cervix cancer metastatic
     Dates: end: 2025
  3. PC [Concomitant]
     Indication: Cervix carcinoma recurrent
     Dates: end: 2025

REACTIONS (15)
  - Malignant neoplasm progression [Unknown]
  - Drug hypersensitivity [Unknown]
  - Hyperthyroidism [Recovered/Resolved]
  - Fatigue [Unknown]
  - Decreased appetite [Unknown]
  - Diarrhoea [Unknown]
  - General physical health deterioration [Unknown]
  - Eastern Cooperative Oncology Group performance status worsened [Unknown]
  - Groin pain [Unknown]
  - Hypoaesthesia [Unknown]
  - Retroperitoneal lymphadenopathy [Unknown]
  - Pain in extremity [Unknown]
  - Peripheral swelling [Unknown]
  - Drug ineffective [Unknown]
  - Tumour pseudoprogression [Unknown]

NARRATIVE: CASE EVENT DATE: 20250101
